FAERS Safety Report 5344475-2 (Version None)
Quarter: 2007Q2

REPORT INFORMATION
  Report Type: 
  Country: None (occurrence: None)
  Receive Date: 20070604
  Receipt Date: 20070524
  Transmission Date: 20071010
  Serious: Yes (Disabling, Other)
  Sender: FDA-Public Use
  Company Number: GB-PFIZER INC-2007027863

PATIENT
  Age: 71 Year
  Sex: Male
  Weight: 79 kg

DRUGS (11)
  1. ATORVASTATIN [Suspect]
     Indication: DIABETES MELLITUS INSULIN-DEPENDENT
     Route: 048
     Dates: start: 20040325, end: 20070328
  2. ATORVASTATIN [Suspect]
     Indication: RENAL FAILURE CHRONIC
  3. QUININE SULFATE [Concomitant]
     Indication: MUSCLE SPASMS
     Route: 048
     Dates: start: 19990120, end: 20070502
  4. NOVOMIX [Concomitant]
  5. INSULATARD [Concomitant]
  6. ESOMEPRAZOLE MAGNESIUM [Concomitant]
     Indication: DYSPEPSIA
     Route: 048
     Dates: start: 20060207, end: 20070418
  7. CLOPIDOGREL [Concomitant]
     Route: 048
     Dates: start: 20030826, end: 20070417
  8. EZETIMIBE [Concomitant]
     Dates: start: 20061009, end: 20070206
  9. DF118 [Concomitant]
  10. PARACETAMOL [Concomitant]
  11. EZETROL [Concomitant]
     Route: 048
     Dates: start: 20061009, end: 20070206

REACTIONS (20)
  - ALOPECIA [None]
  - ANOREXIA [None]
  - ARTHRALGIA [None]
  - ARTHRITIS [None]
  - ASTHENIA [None]
  - BACK PAIN [None]
  - BLOOD GLUCOSE FLUCTUATION [None]
  - FATIGUE [None]
  - FEELING HOT [None]
  - HYPERSENSITIVITY [None]
  - HYPOAESTHESIA [None]
  - INJECTION SITE BRUISING [None]
  - MUSCLE ATROPHY [None]
  - MUSCLE SPASMS [None]
  - OEDEMA PERIPHERAL [None]
  - PAIN [None]
  - PARAESTHESIA [None]
  - SKIN BURNING SENSATION [None]
  - TENDERNESS [None]
  - WEIGHT DECREASED [None]
